FAERS Safety Report 18508089 (Version 3)
Quarter: 2021Q2

REPORT INFORMATION
  Report Type: Spontaneous
  Country: US (occurrence: US)
  Receive Date: 20201116
  Receipt Date: 20210514
  Transmission Date: 20210717
  Serious: Yes (Other)
  Sender: FDA-Public Use
  Company Number: US-PFIZER INC-2020450281

PATIENT
  Age: 67 Year
  Sex: Male

DRUGS (5)
  1. INLYTA [Suspect]
     Active Substance: AXITINIB
     Dosage: 5 MG
     Dates: start: 20201112, end: 2020
  2. INLYTA [Suspect]
     Active Substance: AXITINIB
     Dosage: 5 MG
     Dates: start: 20201221
  3. INLYTA [Suspect]
     Active Substance: AXITINIB
     Dosage: 20 MG, DAILY (TWO TABLETS AM AND TWO TABLETS PM)
     Dates: start: 20210222, end: 2021
  4. INLYTA [Suspect]
     Active Substance: AXITINIB
     Dosage: 25 MG, DAILY (THREE IN THE MORNING AND TWO AT NIGHT)
     Dates: start: 2021
  5. INLYTA [Suspect]
     Active Substance: AXITINIB
     Dosage: UNK
     Dates: start: 20201025, end: 2020

REACTIONS (4)
  - Fatigue [Unknown]
  - Hypertension [Unknown]
  - Intentional product use issue [Unknown]
  - Chest pain [Unknown]
